FAERS Safety Report 12297618 (Version 2)
Quarter: 2016Q2

REPORT INFORMATION
  Report Type: Report from Study
  Country: IN (occurrence: IN)
  Receive Date: 20160422
  Receipt Date: 20160426
  Transmission Date: 20160815
  Serious: Yes (Death)
  Sender: FDA-Public Use
  Company Number: PHHY2016IN053449

PATIENT
  Age: 91 Year
  Sex: Male

DRUGS (3)
  1. SYNDOPA [Concomitant]
     Active Substance: LEVODOPA
     Indication: PARKINSON^S DISEASE
     Dosage: UNK UNK, QD
     Route: 048
     Dates: start: 20160310
  2. EXELON PATCH [Suspect]
     Active Substance: RIVASTIGMINE
     Indication: DEMENTIA ALZHEIMER^S TYPE
     Dosage: PATCH 5 CM2
     Route: 062
     Dates: start: 20160310
  3. QUTIPIN [Concomitant]
     Indication: SCHIZOPHRENIA
     Dosage: UNK UNK, QD
     Route: 048
     Dates: start: 20160310

REACTIONS (1)
  - Decreased appetite [Fatal]
